FAERS Safety Report 8710621 (Version 3)
Quarter: 2012Q4

REPORT INFORMATION
  Report Type: 
  Country: US (occurrence: US)
  Receive Date: 20120807
  Receipt Date: 20121228
  Transmission Date: 20130627
  Serious: Yes (Hospitalization, Other)
  Sender: FDA-Public Use
  Company Number: US-JNJFOC-20120713582

PATIENT
  Sex: Female
  Weight: 71.67 kg

DRUGS (2)
  1. DURAGESIC [Suspect]
     Indication: SPINAL DISORDER
     Route: 062
     Dates: start: 2002, end: 2004
  2. DURAGESIC [Suspect]
     Indication: SPINAL DISORDER
     Route: 062
     Dates: start: 2010

REACTIONS (8)
  - Bone cyst [Recovered/Resolved]
  - Spinal ligament ossification [Unknown]
  - Impaired healing [Unknown]
  - Back pain [Not Recovered/Not Resolved]
  - Neck pain [Not Recovered/Not Resolved]
  - Extraskeletal ossification [Unknown]
  - Drug dose omission [Not Recovered/Not Resolved]
  - Product quality issue [Unknown]
